FAERS Safety Report 5149960-4 (Version None)
Quarter: 2006Q4

REPORT INFORMATION
  Report Type: 
  Country: None (occurrence: None)
  Receive Date: 20061108
  Receipt Date: 20061025
  Transmission Date: 20070319
  Serious: Yes (Other)
  Sender: FDA-Public Use
  Company Number: 2006131411

PATIENT
  Age: 68 Year
  Sex: Male
  Weight: 59.8748 kg

DRUGS (3)
  1. VIAGRA [Suspect]
     Indication: ERECTILE DYSFUNCTION
     Dates: end: 20060101
  2. WARFARIN            (WARFRIN) [Concomitant]
  3. CARDIAC THERAPY    (CARDIAC THERAPY) [Concomitant]

REACTIONS (2)
  - VISION BLURRED [None]
  - VISUAL DISTURBANCE [None]
